FAERS Safety Report 4359912-X (Version None)
Quarter: 2004Q2

REPORT INFORMATION
  Report Type: 
  Country: None (occurrence: None)
  Receive Date: 20040518
  Receipt Date: 20040505
  Transmission Date: 20050107
  Serious: Yes (Other)
  Sender: FDA-Public Use
  Company Number: PHHO2004CA06608

PATIENT
  Age: 52 Year
  Sex: Female

DRUGS (5)
  1. CLOZARIL [Suspect]
     Indication: SCHIZOPHRENIA
     Dosage: 175MG DAILY
     Route: 048
     Dates: start: 20031117, end: 20040107
  2. CLOZARIL [Suspect]
     Dosage: UNSPECIFIED
     Route: 048
  3. QUETIAPINE [Concomitant]
  4. DIVALPROEX SODIUM [Concomitant]
  5. CLONAZEPAM [Concomitant]

REACTIONS (4)
  - DIARRHOEA [None]
  - IDIOSYNCRATIC DRUG REACTION [None]
  - ORTHOSTATIC HYPOTENSION [None]
  - PYREXIA [None]
